FAERS Safety Report 5429665-2 (Version None)
Quarter: 2007Q3

REPORT INFORMATION
  Report Type: 
  Country: None (occurrence: None)
  Receive Date: 20070829
  Receipt Date: 20070820
  Transmission Date: 20080115
  Serious: Yes (Other)
  Sender: FDA-Public Use
  Company Number: US-SHR-US-2007-018712

PATIENT
  Age: 53 Year
  Sex: Female
  Weight: 67.12 kg

DRUGS (13)
  1. BETASERON [Suspect]
     Indication: RELAPSING-REMITTING MULTIPLE SCLEROSIS
     Dosage: 8 MIU, EVERY 2D
     Route: 058
     Dates: start: 20000101
  2. PREDNISOLONE ACETATE [Suspect]
     Dosage: 5 MG, 2X/DAY
     Dates: start: 20060101
  3. COSOPT [Suspect]
     Indication: GLAUCOMA
     Dosage: 1DROP, 2X/DAY
     Dates: start: 20070101, end: 20070601
  4. CYMBALTA (DULOXETIN) [Concomitant]
     Indication: DEPRESSION
     Dosage: UNK, 1X/DAY
     Dates: start: 20060101
  5. CENTRUM [Concomitant]
     Dosage: UNK, 1X/DAY
  6. GLYBURIDE [Concomitant]
     Dosage: UNK, 1X/DAY
  7. BACLOFEN [Concomitant]
     Dosage: UNK, 5X/DAY
  8. CELECOXIB [Concomitant]
     Dosage: UNK, 1X/DAY
  9. OMEPRAZOLE [Concomitant]
     Dosage: 20 MG, 1X/DAY
  10. TIZANIDINE HCL [Concomitant]
     Dosage: UNK, 1X/DAY
  11. CETIRIZINE HCL [Concomitant]
     Dosage: 10 UNK, UNK
  12. ASPIRIN [Concomitant]
     Dosage: 81 MG, 1X/DAY
  13. ADVAIR DISKUS 100/50 [Concomitant]

REACTIONS (9)
  - BRONCHITIS CHRONIC [None]
  - COUGH [None]
  - DIABETES MELLITUS [None]
  - DYSPNOEA [None]
  - GLAUCOMA [None]
  - MACULAR OEDEMA [None]
  - OPTIC NERVE INJURY [None]
  - PALPITATIONS [None]
  - UVEITIS [None]
